FAERS Safety Report 19823121 (Version 2)
Quarter: 2021Q3

REPORT INFORMATION
  Report Type: Report from Study
  Country: US (occurrence: US)
  Receive Date: 20210913
  Receipt Date: 20210920
  Transmission Date: 20211014
  Serious: Yes (Other)
  Sender: FDA-Public Use
  Company Number: NVSC2021US206139

PATIENT
  Age: 72 Year
  Sex: Female

DRUGS (1)
  1. ENTRESTO [Suspect]
     Active Substance: SACUBITRIL\VALSARTAN
     Indication: CARDIAC FAILURE
     Dosage: 50 MG, BID (24/26MG)
     Route: 048
     Dates: start: 20210827

REACTIONS (6)
  - Pain in extremity [Not Recovered/Not Resolved]
  - Nervousness [Unknown]
  - Concomitant disease aggravated [Not Recovered/Not Resolved]
  - Arthralgia [Not Recovered/Not Resolved]
  - Dyspnoea [Unknown]
  - Cardiac failure [Unknown]

NARRATIVE: CASE EVENT DATE: 20210901
